FAERS Safety Report 12474977 (Version 4)
Quarter: 2016Q3

REPORT INFORMATION
  Report Type: Spontaneous
  Country: GB (occurrence: GB)
  Receive Date: 20160617
  Receipt Date: 20160927
  Transmission Date: 20161109
  Serious: Yes (Hospitalization, Other)
  Sender: FDA-Public Use
  Company Number: GB-ACCORD-041476

PATIENT
  Age: 90 Year
  Sex: Male

DRUGS (2)
  1. CLOPIDOGREL [Suspect]
     Active Substance: CLOPIDOGREL BISULFATE
     Indication: HEART VALVE REPLACEMENT
     Route: 048
  2. APIXABAN [Suspect]
     Active Substance: APIXABAN
     Indication: CEREBROVASCULAR ACCIDENT PROPHYLAXIS
     Route: 048

REACTIONS (7)
  - Cerebrovascular accident [Unknown]
  - Haematoma [Unknown]
  - Transfusion [Unknown]
  - Muscle haemorrhage [Unknown]
  - Transcatheter aortic valve implantation [Unknown]
  - Deep vein thrombosis [Unknown]
  - Contraindicated product administered [Unknown]
